FAERS Safety Report 4962256-6 (Version None)
Quarter: 2006Q2

REPORT INFORMATION
  Report Type: 
  Country: None (occurrence: None)
  Receive Date: 20060404
  Receipt Date: 20060327
  Transmission Date: 20061013
  Serious: Yes (Hospitalization)
  Sender: FDA-Public Use
  Company Number: PHBS2006JP04799

PATIENT
  Age: 51 Year
  Sex: Male
  Weight: 50 kg

DRUGS (10)
  1. LASIX [Suspect]
     Indication: RENAL FAILURE
     Dosage: 40 MG, BID
     Route: 048
     Dates: start: 20051101
  2. AMLODIN [Suspect]
     Indication: HYPERTENSION
     Dosage: 10 MG/DAY
     Route: 048
     Dates: start: 20040101, end: 20060317
  3. OMEPRAL [Suspect]
     Indication: GASTROINTESTINAL HAEMORRHAGE
     Dosage: 20 MG/DAY
     Route: 048
     Dates: start: 20051101, end: 20060309
  4. ALLOID [Suspect]
     Indication: ULCER
     Dosage: 160 ML/DAY
     Route: 048
     Dates: start: 20051101, end: 20060307
  5. RENIVACE [Suspect]
     Dosage: 5 MG/DAY
     Route: 048
     Dates: start: 20060101, end: 20060317
  6. PREDNISOLONE [Concomitant]
     Indication: VASCULITIS
     Dosage: 50 MG, UNK
     Dates: start: 20060213
  7. AMLODIN [Concomitant]
     Route: 048
  8. OMEPRAL [Concomitant]
  9. FERRUM [Concomitant]
     Dosage: 305 MG, UNK
     Route: 048
     Dates: start: 20050101
  10. DIOVAN [Suspect]
     Indication: HYPERTENSION
     Dosage: 80 MG/DAY
     Route: 048
     Dates: start: 20040101, end: 20060317

REACTIONS (6)
  - BLEEDING TIME PROLONGED [None]
  - HAEMOGLOBIN DECREASED [None]
  - PANCYTOPENIA [None]
  - PLATELET COUNT DECREASED [None]
  - PYREXIA [None]
  - WHITE BLOOD CELL COUNT DECREASED [None]
